FAERS Safety Report 17177791 (Version 1)
Quarter: 2019Q4

REPORT INFORMATION
  Report Type: Report from Study
  Country: None (occurrence: CA)
  Receive Date: 20191219
  Receipt Date: 20191219
  Transmission Date: 20200122
  Serious: Yes (Other)
  Sender: FDA-Public Use
  Company Number: CA-ABBVIE-19K-028-3198819-00

PATIENT
  Age: 26 Year
  Sex: Male

DRUGS (2)
  1. HUMIRA [Suspect]
     Active Substance: ADALIMUMAB
     Dosage: ALTERNATING DOSE OF 80MG ONE WEEK AND 40MG THE OTHER
     Route: 058
  2. HUMIRA [Suspect]
     Active Substance: ADALIMUMAB
     Indication: CROHN^S DISEASE
     Dosage: ALTERNATING DOSE OF 80MG ONE WEEK AND 40MG THE OTHER
     Route: 058
     Dates: start: 20181018

REACTIONS (5)
  - Obstruction [Not Recovered/Not Resolved]
  - Weight increased [Unknown]
  - Gastrointestinal pain [Not Recovered/Not Resolved]
  - Malaise [Recovering/Resolving]
  - Diarrhoea [Unknown]

NARRATIVE: CASE EVENT DATE: 201912
